FAERS Safety Report 5565334-6 (Version None)
Quarter: 2007Q4

REPORT INFORMATION
  Report Type: 
  Country: None (occurrence: None)
  Receive Date: 20071218
  Receipt Date: 20031125
  Transmission Date: 20080405
  Serious: Yes (Death)
  Sender: FDA-Public Use
  Company Number: US-ROCHE-348893

PATIENT
  Age: 40 Year
  Sex: Female

DRUGS (7)
  1. CYTOVENE [Suspect]
     Dosage: PATIENT RECEIVES 200 MCG (.1 ML / .3 CC)
     Route: 031
     Dates: start: 20010101
  2. VIDEX [Concomitant]
     Route: 048
  3. KALETRA [Concomitant]
     Route: 048
  4. UNKNOWN MEDICATION [Concomitant]
     Dosage: THERAPY REPORTED AS ARGONOX
     Route: 048
  5. UNKNOWN MEDICATION [Concomitant]
     Dosage: THERAPY DESCRIBED AS ZYAGEN.
     Route: 048
  6. BACTRIM [Concomitant]
     Route: 048
  7. DIFLUCAN [Concomitant]
     Route: 048

REACTIONS (2)
  - ACQUIRED IMMUNODEFICIENCY SYNDROME [None]
  - DISEASE PROGRESSION [None]
